FAERS Safety Report 4709152-7 (Version None)
Quarter: 2005Q3

REPORT INFORMATION
  Report Type: 
  Country: None (occurrence: None)
  Receive Date: 20050708
  Receipt Date: 20050624
  Transmission Date: 20060218
  Serious: Yes (Hospitalization)
  Sender: FDA-Public Use
  Company Number: DE-JNJFOC-20050607112

PATIENT
  Age: 52 Year
  Sex: Female

DRUGS (12)
  1. HALDOL [Suspect]
     Route: 049
  2. HALDOL [Suspect]
     Route: 049
  3. HALDOL [Suspect]
     Route: 049
  4. HALDOL [Suspect]
     Route: 049
  5. HALDOL [Suspect]
     Route: 049
  6. HALDOL [Suspect]
     Route: 049
  7. HALDOL [Suspect]
     Route: 049
  8. HALDOL [Suspect]
     Route: 049
  9. SOLIAN [Suspect]
     Route: 049
  10. MELPERON [Suspect]
     Route: 049
  11. MELPERON [Suspect]
     Route: 049
  12. MELPERON [Suspect]
     Route: 049

REACTIONS (1)
  - PLEUROTHOTONUS [None]
